FAERS Safety Report 8550828-1 (Version None)
Quarter: 2012Q3

REPORT INFORMATION
  Report Type: 
  Country: None (occurrence: None)
  Receive Date: 20120730
  Receipt Date: 20110819
  Transmission Date: 20120928
  Serious: No
  Sender: FDA-Public Use
  Company Number: US-ALLERGAN-1111211US

PATIENT
  Sex: Male

DRUGS (3)
  1. NAMENDA [Concomitant]
     Indication: DEMENTIA
     Dosage: UNK
  2. ARICEPT                            /01318901/ [Concomitant]
     Indication: DEMENTIA
     Dosage: UNK
  3. LUMIGAN [Suspect]
     Indication: GLAUCOMA
     Dosage: 2 GTT, QPM
     Route: 047
     Dates: start: 20110815

REACTIONS (3)
  - OCULAR HYPERAEMIA [None]
  - VISUAL IMPAIRMENT [None]
  - HALLUCINATION, VISUAL [None]
